FAERS Safety Report 23461668 (Version 2)
Quarter: 2024Q1

REPORT INFORMATION
  Report Type: Report from Study
  Country: NL (occurrence: NL)
  Receive Date: 20240131
  Receipt Date: 20240319
  Transmission Date: 20240410
  Serious: Yes (Hospitalization)
  Sender: FDA-Public Use
  Company Number: NL-ABBVIE-5613923

PATIENT
  Age: 67 Year
  Sex: Male

DRUGS (5)
  1. CARBIDOPA\LEVODOPA [Suspect]
     Active Substance: CARBIDOPA\LEVODOPA
     Indication: Parkinson^s disease
     Route: 050
     Dates: start: 20200325
  2. CARBIDOPA\LEVODOPA [Suspect]
     Active Substance: CARBIDOPA\LEVODOPA
     Dosage: MD: 6.7ML, CD: 3.1ML/H, ED: 3.0ML; DURATION TEXT: REMAINS AT 16 HOURS
     Route: 050
     Dates: start: 20231123, end: 20231127
  3. CARBIDOPA\LEVODOPA [Suspect]
     Active Substance: CARBIDOPA\LEVODOPA
     Dosage: MD: 6.7ML, CD: 3.3ML/H, ED: 3.5ML; DURATION TEXT: REMAINS AT 16 HOURS
     Route: 050
     Dates: start: 20240102
  4. CARBIDOPA\LEVODOPA [Suspect]
     Active Substance: CARBIDOPA\LEVODOPA
     Dosage: MD: 6.7ML, CD: 3.3ML/H, ED: 3.5ML; DURATION TEXT: REMAINS AT 16 HOURS
     Route: 050
     Dates: start: 20231128, end: 20240101
  5. CARBIDOPA\LEVODOPA [Suspect]
     Active Substance: CARBIDOPA\LEVODOPA
     Dosage: MD: 6.7ML, CD: 3.1ML/H, ED: 3.0ML; DURATION TEXT: REMAINS AT 16 HOURS
     Route: 050
     Dates: start: 20230814, end: 20231122

REACTIONS (2)
  - Transient ischaemic attack [Not Recovered/Not Resolved]
  - Stoma site discharge [Not Recovered/Not Resolved]

NARRATIVE: CASE EVENT DATE: 20240127
